FAERS Safety Report 4412176-0 (Version None)
Quarter: 2004Q2

REPORT INFORMATION
  Report Type: 
  Country: None (occurrence: None)
  Receive Date: 20040630
  Receipt Date: 20040510
  Transmission Date: 20050107
  Serious: No
  Sender: FDA-Public Use
  Company Number: 04P-163-0260102-00

PATIENT
  Age: 61 Year
  Sex: Female
  Weight: 75.2971 kg

DRUGS (2)
  1. HUMIRA [Suspect]
     Indication: RHEUMATOID ARTHRITIS
     Dosage: 40 MG, 1 IN 2 WK, SUBCUTANEOUS
     Route: 058
     Dates: start: 20031201
  2. METHOTREXATE SODIUM [Concomitant]

REACTIONS (3)
  - ARTHRALGIA [None]
  - FATIGUE [None]
  - RHEUMATOID ARTHRITIS [None]
